FAERS Safety Report 6130655-5 (Version None)
Quarter: 2009Q1

REPORT INFORMATION
  Report Type: 
  Country: None (occurrence: None)
  Receive Date: 20090325
  Receipt Date: 20090317
  Transmission Date: 20090719
  Serious: Yes (Other)
  Sender: FDA-Public Use
  Company Number: US-AMGEN-US338711

PATIENT
  Sex: Male

DRUGS (3)
  1. NPLATE [Suspect]
     Indication: IDIOPATHIC THROMBOCYTOPENIC PURPURA
     Route: 058
     Dates: start: 20081014, end: 20090115
  2. CORTICOSTEROIDS [Concomitant]
     Route: 065
     Dates: start: 20080707, end: 20080929
  3. CORTICOSTEROIDS [Concomitant]
     Route: 065

REACTIONS (1)
  - DRUG INEFFECTIVE [None]
